FAERS Safety Report 8443843-X (Version None)
Quarter: 2012Q2

REPORT INFORMATION
  Report Type: 
  Country: None (occurrence: None)
  Receive Date: 20120618
  Receipt Date: 20120606
  Transmission Date: 20120825
  Serious: Yes (Hospitalization)
  Sender: FDA-Public Use
  Company Number: US-BAYER-2012-056848

PATIENT
  Age: 30 Year
  Sex: Female
  Weight: 74.376 kg

DRUGS (18)
  1. DROSPIRENONE AND ETHINYL ESTRADIOL [Suspect]
     Indication: DYSMENORRHOEA
     Dosage: UNK
     Dates: start: 20101113, end: 20110117
  2. DROSPIRENONE AND ETHINYL ESTRADIOL [Suspect]
     Indication: PREMENSTRUAL SYNDROME
  3. YASMIN [Suspect]
  4. ONE-A-DAY [VIT C,B12,D2,B3,B6,RETINOL,B2,B1 MONONITR] [Concomitant]
     Dosage: UNK, 2 PILLS DAILY
  5. CARAFATE [Concomitant]
  6. VALTREX [Concomitant]
     Dosage: 500 MG, UNK
     Dates: start: 20001123
  7. YAZ [Suspect]
  8. NSAID'S [Concomitant]
     Dosage: UNK
     Dates: start: 20110101, end: 20120201
  9. SUCRALFATE [Concomitant]
  10. GREEN TEA SUPPLEMENT [Concomitant]
     Dosage: DAILY
  11. YAZ [Suspect]
     Indication: DYSMENORRHOEA
  12. NEXIUM [Concomitant]
  13. DROSPIRENONE AND ETHINYL ESTRADIOL [Suspect]
  14. ASCORBIC ACID [Concomitant]
     Dosage: UNK, 2 PILLS DAILY
     Dates: start: 20110101
  15. YAZ [Suspect]
     Indication: PREMENSTRUAL SYNDROME
  16. EXCEDRIN (MIGRAINE) [Concomitant]
     Indication: MIGRAINE
  17. DROSPIRENONE AND ETHINYL ESTRADIOL [Suspect]
     Indication: CONTRACEPTION
  18. YAZ [Suspect]
     Indication: CONTRACEPTION

REACTIONS (3)
  - PORTAL VEIN THROMBOSIS [None]
  - ABDOMINAL PAIN UPPER [None]
  - COITAL BLEEDING [None]
